FAERS Safety Report 4563695-8 (Version None)
Quarter: 2005Q1

REPORT INFORMATION
  Report Type: 
  Country: None (occurrence: None)
  Receive Date: 20050124
  Receipt Date: 20050113
  Transmission Date: 20050727
  Serious: Yes (Hospitalization)
  Sender: FDA-Public Use
  Company Number: 2005010012

PATIENT
  Age: 29 Year
  Sex: Male

DRUGS (4)
  1. DORAL [Suspect]
     Indication: INSOMNIA
     Dosage: 75 MG + 600MG, PO
     Route: 048
     Dates: start: 20041206, end: 20041207
  2. LEVOMEPROMAZINE MALEATE [Suspect]
     Dosage: 150 MG QD, PO
     Route: 048
     Dates: start: 20041105, end: 20041209
  3. VALPROATE SODIUM [Concomitant]
  4. INSULIN [Concomitant]

REACTIONS (8)
  - ALCOHOL USE [None]
  - BODY TEMPERATURE DECREASED [None]
  - BODY TEMPERATURE INCREASED [None]
  - DEPRESSED LEVEL OF CONSCIOUSNESS [None]
  - EMOTIONAL DISTRESS [None]
  - INSOMNIA [None]
  - OVERDOSE [None]
  - VOMITING [None]
